FAERS Safety Report 25544353 (Version 2)
Quarter: 2025Q3

REPORT INFORMATION
  Report Type: Report from Study
  Country: JP (occurrence: JP)
  Receive Date: 20250711
  Receipt Date: 20250809
  Transmission Date: 20251020
  Serious: Yes (Other)
  Sender: ALEXION PHARMACEUTICALS
  Company Number: JP-ASTRAZENECA-202507JPN007035JP

PATIENT
  Age: 82 Year
  Sex: Male

DRUGS (1)
  1. OSIMERTINIB [Suspect]
     Active Substance: OSIMERTINIB
     Indication: Non-small cell lung cancer
     Route: 065
     Dates: start: 20241119, end: 20241211

REACTIONS (3)
  - Pruritus [Recovering/Resolving]
  - Diarrhoea [Recovering/Resolving]
  - Hepatic failure [Recovered/Resolved]

NARRATIVE: CASE EVENT DATE: 20241212
